FAERS Safety Report 8392333-1 (Version None)
Quarter: 2012Q2

REPORT INFORMATION
  Report Type: 
  Country: None (occurrence: None)
  Receive Date: 20120529
  Receipt Date: 20120523
  Transmission Date: 20120825
  Serious: Yes (Death)
  Sender: FDA-Public Use
  Company Number: US-CELGENEUS-163-21880-12053020

PATIENT
  Sex: Male

DRUGS (11)
  1. HYDROCODONE BITARTRATE AND ACETAMINOPHEN [Concomitant]
     Dosage: 7.5-500
     Route: 048
  2. WARFARIN SODIUM [Concomitant]
     Dosage: 1 MILLIGRAM
     Route: 048
  3. ZEMPLAR [Concomitant]
     Dosage: 4 MICROGRAM
     Route: 048
  4. COLACE [Concomitant]
     Dosage: 100 MILLIGRAM
     Route: 048
  5. ZOLPIDEM [Concomitant]
     Dosage: 5 MILLIGRAM
     Route: 048
  6. REVLIMID [Suspect]
     Indication: MULTIPLE MYELOMA
     Dosage: 25 MILLIGRAM
     Route: 048
     Dates: start: 20100528, end: 20120101
  7. DEXAMETHASONE [Concomitant]
     Dosage: 4 MILLIGRAM
     Route: 048
  8. SENNA-MINT WAF [Concomitant]
     Dosage: 8.6 MILLIGRAM
     Route: 048
  9. SIMVASTATIN [Concomitant]
     Dosage: 80 MILLIGRAM
     Route: 048
  10. CALCIUM CARBONATE [Concomitant]
     Dosage: 500 MILLIGRAM
     Route: 048
  11. UNISOM [Concomitant]
     Dosage: 25 MILLIGRAM
     Route: 048

REACTIONS (1)
  - DEATH [None]
